FAERS Safety Report 8127241-4 (Version None)
Quarter: 2012Q1

REPORT INFORMATION
  Report Type: 
  Country: None (occurrence: None)
  Receive Date: 20120210
  Receipt Date: 20120202
  Transmission Date: 20120608
  Serious: Yes (Other)
  Sender: FDA-Public Use
  Company Number: US-BAYER-2011-076249

PATIENT
  Age: 25 Year
  Sex: Female
  Weight: 54.422 kg

DRUGS (5)
  1. LORTAB [Concomitant]
     Indication: PAIN
     Dosage: 7.5 MG, QID
     Route: 048
  2. YASMIN [Suspect]
     Dosage: UNK
     Dates: start: 20030701, end: 20080101
  3. PHENERGAN [Concomitant]
     Indication: NAUSEA
     Dosage: 25 MG, UNK
     Route: 048
  4. CLARITIN [Concomitant]
     Dosage: 10 MG, UNK
     Route: 048
  5. XANAX [Concomitant]
     Dosage: 1 MG, UNK
     Route: 048

REACTIONS (9)
  - DEEP VEIN THROMBOSIS [None]
  - MYOCARDIAL INFARCTION [None]
  - CHOLECYSTITIS CHRONIC [None]
  - PULMONARY EMBOLISM [None]
  - PAIN [None]
  - INJURY [None]
  - MENTAL DISORDER [None]
  - CEREBROVASCULAR ACCIDENT [None]
  - GALLBLADDER DISORDER [None]
